FAERS Safety Report 7911808-X (Version None)
Quarter: 2011Q4

REPORT INFORMATION
  Report Type: 
  Country: None (occurrence: None)
  Receive Date: 20111114
  Receipt Date: 20111110
  Transmission Date: 20120403
  Serious: Yes (Other)
  Sender: FDA-Public Use
  Company Number: MY-ROCHE-788812

PATIENT
  Sex: Female
  Weight: 50.5 kg

DRUGS (2)
  1. RECORMON [Suspect]
     Indication: PRODUCT USED FOR UNKNOWN INDICATION
     Dosage: DOSE: 5000 IU
     Route: 065
  2. MIRCERA [Suspect]
     Indication: ANAEMIA
     Route: 065

REACTIONS (2)
  - ILL-DEFINED DISORDER [None]
  - HAEMOGLOBIN DECREASED [None]
